FAERS Safety Report 7491333-3 (Version None)
Quarter: 2011Q2

REPORT INFORMATION
  Report Type: 
  Country: None (occurrence: None)
  Receive Date: 20110519
  Receipt Date: 20110512
  Transmission Date: 20111010
  Serious: Yes (Hospitalization)
  Sender: FDA-Public Use
  Company Number: JP-BAYER-2011-041626

PATIENT
  Age: 72 Year
  Sex: Male

DRUGS (1)
  1. NEXAVAR [Suspect]
     Indication: HEPATIC NEOPLASM MALIGNANT
     Dosage: 200 MG, QID
     Route: 048
     Dates: start: 20110421, end: 20110506

REACTIONS (7)
  - DIARRHOEA [None]
  - MUSCLE SPASMS [None]
  - HEPATIC FUNCTION ABNORMAL [None]
  - MALAISE [None]
  - RASH [None]
  - HAEMOGLOBIN INCREASED [None]
  - BLOOD URIC ACID INCREASED [None]
